FAERS Safety Report 17656999 (Version 7)
Quarter: 2020Q3

REPORT INFORMATION
  Report Type: Report from Study
  Country: US (occurrence: US)
  Receive Date: 20200410
  Receipt Date: 20200917
  Transmission Date: 20201102
  Serious: Yes (Death, Hospitalization, Other)
  Sender: FDA-Public Use
  Company Number: US-TAIHO ONCOLOGY  INC-EU-2020-00805

PATIENT
  Age: 78 Year
  Sex: Male

DRUGS (15)
  1. LONSURF [Suspect]
     Active Substance: TIPIRACIL HYDROCHLORIDE\TRIFLURIDINE
     Indication: COLON CANCER
     Dosage: CYCLE NUMBER 1
     Route: 048
     Dates: start: 20191118
  2. OFLOXACIN. [Concomitant]
     Active Substance: OFLOXACIN
  3. MORPHINE [Concomitant]
     Active Substance: MORPHINE
  4. XARELTO [Concomitant]
     Active Substance: RIVAROXABAN
     Indication: PORTAL VEIN THROMBOSIS
  5. OMEPRAZOLE. [Concomitant]
     Active Substance: OMEPRAZOLE
  6. SPIRONOLACTONE. [Concomitant]
     Active Substance: SPIRONOLACTONE
  7. LONSURF [Suspect]
     Active Substance: TIPIRACIL HYDROCHLORIDE\TRIFLURIDINE
     Dosage: CYCLE NUMBER 3 TO 5.
     Route: 048
     Dates: start: 20200120
  8. PREDNISOLONE. [Concomitant]
     Active Substance: PREDNISOLONE
  9. BENZONATATE. [Concomitant]
     Active Substance: BENZONATATE
  10. LONSURF [Suspect]
     Active Substance: TIPIRACIL HYDROCHLORIDE\TRIFLURIDINE
     Dosage: UNKNOWN CYCLE
     Route: 048
     Dates: start: 20200526, end: 20200616
  11. LONSURF [Suspect]
     Active Substance: TIPIRACIL HYDROCHLORIDE\TRIFLURIDINE
     Dosage: CYCLE NUMBER 2
     Route: 048
     Dates: start: 20191217
  12. ATROPINE. [Concomitant]
     Active Substance: ATROPINE
  13. FUROSEMIDE. [Concomitant]
     Active Substance: FUROSEMIDE
  14. KETOROLAC [Concomitant]
     Active Substance: KETOROLAC TROMETHAMINE
  15. FENTANYL. [Concomitant]
     Active Substance: FENTANYL

REACTIONS (7)
  - Anaemia [Recovering/Resolving]
  - Incorrect dosage administered [Unknown]
  - Small intestinal obstruction [Recovered/Resolved]
  - Underdose [Unknown]
  - Pancytopenia [Recovering/Resolving]
  - Neutrophil count decreased [Recovered/Resolved]
  - Disease progression [Fatal]

NARRATIVE: CASE EVENT DATE: 20200106
